FAERS Safety Report 8602631-1 (Version None)
Quarter: 2012Q3

REPORT INFORMATION
  Report Type: 
  Country: None (occurrence: None)
  Receive Date: 20120817
  Receipt Date: 19911103
  Transmission Date: 20120928
  Serious: Yes (Hospitalization)
  Sender: FDA-Public Use
  Company Number: US-ROCHE-1100848

PATIENT
  Age: 55 Year
  Sex: Male

DRUGS (9)
  1. ACTIVASE [Suspect]
  2. LIDOCAINE [Concomitant]
     Dosage: 60 CC/HOUR
  3. MORPHINE SULFATE [Concomitant]
     Route: 042
  4. LASIX [Concomitant]
     Route: 042
  5. ACTIVASE [Suspect]
     Indication: PRODUCT USED FOR UNKNOWN INDICATION
     Route: 040
  6. OXYGEN [Concomitant]
  7. ACTIVASE [Suspect]
  8. LIDOCAINE [Concomitant]
  9. PROCAINAMIDE [Concomitant]

REACTIONS (2)
  - COUGH [None]
  - CHEST PAIN [None]
